APPROVED DRUG PRODUCT: LORATADINE
Active Ingredient: LORATADINE
Strength: 10MG
Dosage Form/Route: CAPSULE;ORAL
Application: A215127 | Product #001
Applicant: CATALENT PHARMA SOLUTIONS LLC
Approved: Feb 28, 2025 | RLD: No | RS: No | Type: DISCN